FAERS Safety Report 11292052 (Version 1)
Quarter: 2015Q3

REPORT INFORMATION
  Report Type: Spontaneous
  Country: US (occurrence: None)
  Receive Date: 20150721
  Receipt Date: 20150721
  Transmission Date: 20151125
  Serious: Yes (Congenital Anomaly)
  Sender: FDA-Public Use
  Company Number: None

PATIENT
  Age: 32 Year
  Sex: Female

DRUGS (2)
  1. HYDROCHLOROTHIAZIDE 25 MG [Suspect]
     Active Substance: HYDROCHLOROTHIAZIDE
     Indication: HYPERTENSION
     Dosage: 1 PILL
     Route: 048
     Dates: start: 20110101, end: 20150430
  2. ALDOMET [Concomitant]
     Active Substance: METHYLDOPA

REACTIONS (7)
  - Maternal exposure during pregnancy [None]
  - Maternal drugs affecting foetus [None]
  - Foetal heart rate abnormal [None]
  - Abortion spontaneous [None]
  - Pregnancy [None]
  - Renal impairment [None]
  - Urinary tract disorder [None]

NARRATIVE: CASE EVENT DATE: 20150622
